FAERS Safety Report 12920890 (Version 1)
Quarter: 2016Q4

REPORT INFORMATION
  Report Type: Spontaneous
  Country: BR (occurrence: BR)
  Receive Date: 20161107
  Receipt Date: 20161107
  Transmission Date: 20170207
  Serious: Yes (Hospitalization)
  Sender: FDA-Public Use
  Company Number: BR-ELI_LILLY_AND_COMPANY-BR201611000346

PATIENT
  Age: 68 Year
  Sex: Female
  Weight: 94 kg

DRUGS (7)
  1. EFFIENT [Suspect]
     Active Substance: PRASUGREL HYDROCHLORIDE
     Indication: COAGULOPATHY
     Dosage: 5 MG, 3/W
     Route: 048
     Dates: start: 2014, end: 20161023
  2. RIVOTRIL [Concomitant]
     Active Substance: CLONAZEPAM
     Indication: PRODUCT USED FOR UNKNOWN INDICATION
     Dosage: UNK UNK, UNKNOWN
     Route: 065
  3. BRASART [Concomitant]
     Active Substance: VALSARTAN
     Indication: HYPERTENSION
     Dosage: UNK UNK, UNKNOWN
     Route: 065
  4. CONCARDIO [Concomitant]
     Active Substance: BISOPROLOL FUMARATE
     Indication: PRODUCT USED FOR UNKNOWN INDICATION
     Dosage: UNK UNK, UNKNOWN
     Route: 065
  5. PURAN [Concomitant]
     Active Substance: LEVOTHYROXINE SODIUM
     Indication: THYROID DISORDER
     Dosage: UNK UNK, UNKNOWN
     Route: 065
     Dates: start: 2002
  6. RITMONORM [Concomitant]
     Active Substance: PROPAFENONE HYDROCHLORIDE
     Indication: PRODUCT USED FOR UNKNOWN INDICATION
     Dosage: UNK UNK, UNKNOWN
     Route: 065
  7. SINVASTATINA [Concomitant]
     Active Substance: SIMVASTATIN
     Indication: PRODUCT USED FOR UNKNOWN INDICATION
     Dosage: UNK UNK, UNKNOWN
     Route: 065

REACTIONS (12)
  - Head discomfort [Recovered/Resolved]
  - Malaise [Recovered/Resolved]
  - Intentional product misuse [Not Recovered/Not Resolved]
  - Presyncope [Recovered/Resolved]
  - Visual acuity reduced [Recovered/Resolved]
  - Head discomfort [Recovered/Resolved]
  - Tachycardia [Recovered/Resolved]
  - Tachycardia [Recovered/Resolved]
  - Presyncope [Recovered/Resolved]
  - Malaise [Recovered/Resolved]
  - Visual acuity reduced [Recovered/Resolved]
  - Off label use [Recovered/Resolved]

NARRATIVE: CASE EVENT DATE: 2014
